FAERS Safety Report 9207422 (Version 1)
Quarter: 2013Q2

REPORT INFORMATION
  Report Type: Spontaneous
  Country: FR (occurrence: FR)
  Receive Date: 20130403
  Receipt Date: 20130403
  Transmission Date: 20140414
  Serious: Yes (Other)
  Sender: FDA-Public Use
  Company Number: FR-ELI_LILLY_AND_COMPANY-FR201302004056

PATIENT
  Age: 72 Year
  Sex: Female
  Weight: 100 kg

DRUGS (13)
  1. FORSTEO [Suspect]
     Indication: OSTEOPOROSIS
     Dosage: 20 UG, QD
     Route: 058
     Dates: start: 20121110, end: 20130210
  2. FORSTEO [Suspect]
     Dosage: 20 UG, QD
     Route: 058
     Dates: start: 20130220, end: 20130303
  3. KARDEGIC [Concomitant]
     Dosage: 160 MG, UNKNOWN
  4. LOVENOX [Concomitant]
     Dosage: 0.4 IU, UNKNOWN
  5. TRINIPATCH [Concomitant]
     Indication: ANGINA PECTORIS
     Dosage: 15 MG, UNKNOWN
  6. ZANIDIP [Concomitant]
     Dosage: 20 MG, UNKNOWN
  7. BISOPROLOL [Concomitant]
     Dosage: 5 MG, UNKNOWN
  8. EFFERALGAN                         /00020001/ [Concomitant]
     Dosage: 1 G, TID
  9. CLARITYNE [Concomitant]
  10. VENTOLINE                          /00139501/ [Concomitant]
  11. ESOMEPRAZOLE [Concomitant]
     Dosage: 20 MG, UNKNOWN
  12. LOPERAMIDE [Concomitant]
  13. SERETIDE [Concomitant]
     Dosage: 500 MG, BID

REACTIONS (9)
  - Depression [Recovered/Resolved]
  - Hallucination, auditory [Recovered/Resolved]
  - Fatigue [Recovered/Resolved]
  - Headache [Recovered/Resolved]
  - Vertigo [Recovered/Resolved]
  - Tinnitus [Recovered/Resolved]
  - Bone pain [Recovered/Resolved]
  - Nightmare [Recovered/Resolved]
  - Asthenia [Recovered/Resolved]
